FAERS Safety Report 11004359 (Version 3)
Quarter: 2015Q3

REPORT INFORMATION
  Report Type: Spontaneous
  Country: US (occurrence: US)
  Receive Date: 20150409
  Receipt Date: 20150713
  Transmission Date: 20151125
  Serious: Yes (Hospitalization, Other)
  Sender: FDA-Public Use
  Company Number: US-009507513-1504USA003816

PATIENT
  Sex: Male
  Weight: 126.98 kg

DRUGS (1)
  1. JANUVIA [Suspect]
     Active Substance: SITAGLIPTIN PHOSPHATE
     Indication: TYPE 2 DIABETES MELLITUS
     Dosage: 100 MG, QD
     Route: 048
     Dates: start: 20070503, end: 20090129

REACTIONS (32)
  - Sepsis [Unknown]
  - Hepatic cirrhosis [Unknown]
  - Gastrooesophageal reflux disease [Unknown]
  - Lymphadenopathy [Unknown]
  - Myalgia [Unknown]
  - Anaemia [Unknown]
  - Renal failure [Recovered/Resolved]
  - Hernia repair [Unknown]
  - Fluid retention [Unknown]
  - Blood triglycerides increased [Unknown]
  - Spinal osteoarthritis [Unknown]
  - Rectal haemorrhage [Unknown]
  - Ascites [Unknown]
  - Intestinal ulcer [Unknown]
  - Insulin-requiring type 2 diabetes mellitus [Unknown]
  - Diverticulum [Unknown]
  - Benign neoplasm of adrenal gland [Unknown]
  - Haemorrhage [Unknown]
  - Arthralgia [Unknown]
  - Pancreaticoduodenectomy [Unknown]
  - Radiotherapy [Unknown]
  - Hiatus hernia [Unknown]
  - Pancreatic carcinoma [Unknown]
  - Sleep apnoea syndrome [Unknown]
  - Gastrointestinal haemorrhage [Unknown]
  - Gastrointestinal ulcer [Unknown]
  - Abdominal hernia [Unknown]
  - Back pain [Unknown]
  - Autoimmune hepatitis [Unknown]
  - Blood cholesterol increased [Unknown]
  - Increased tendency to bruise [Unknown]
  - Immunosuppression [Unknown]

NARRATIVE: CASE EVENT DATE: 2008
